FAERS Safety Report 7867115-7 (Version None)
Quarter: 2011Q4

REPORT INFORMATION
  Report Type: 
  Country: None (occurrence: None)
  Receive Date: 20111028
  Receipt Date: 20111021
  Transmission Date: 20120403
  Serious: Yes (Hospitalization, Other)
  Sender: FDA-Public Use
  Company Number: US-BRISTOL-MYERS SQUIBB COMPANY-14566814

PATIENT
  Age: 54 Year
  Sex: Male
  Weight: 57 kg

DRUGS (2)
  1. ERBITUX [Suspect]
     Indication: THROAT CANCER
     Dosage: START DATE: 18FEB09 COURSE ASSOCIATED: 23MAR09 TOTAL NO OF COURSES TO DATE:7
     Dates: start: 20090323, end: 20090323
  2. CISPLATIN [Suspect]
     Indication: THROAT CANCER
     Dosage: START DATE: 18FEB09 COURSE ASSOCIATED: 23MAR09 TOTAL NO OF COURSES:7
     Dates: start: 20090316, end: 20090316

REACTIONS (8)
  - STOMATITIS [None]
  - DYSPHAGIA [None]
  - MUCOSAL INFLAMMATION [None]
  - VOMITING [None]
  - NAUSEA [None]
  - DECREASED APPETITE [None]
  - WEIGHT DECREASED [None]
  - FATIGUE [None]
